FAERS Safety Report 25986258 (Version 1)
Quarter: 2025Q4

REPORT INFORMATION
  Report Type: Spontaneous
  Country: US (occurrence: US)
  Receive Date: 20251031
  Receipt Date: 20251031
  Transmission Date: 20260118
  Serious: Yes (Hospitalization, Other)
  Sender: NOVO NORDISK
  Company Number: US-NOVOPROD-1551385

PATIENT
  Sex: Female

DRUGS (1)
  1. LEVEMIR [Suspect]
     Active Substance: INSULIN DETEMIR
     Indication: Diabetes mellitus
     Dosage: UNK

REACTIONS (5)
  - Animal scratch [Unknown]
  - Cardiac failure [Unknown]
  - Wound infection [Not Recovered/Not Resolved]
  - Renal failure [Unknown]
  - Sepsis [Unknown]
